FAERS Safety Report 14330878 (Version 1)
Quarter: 2017Q4

REPORT INFORMATION
  Report Type: Spontaneous
  Country: CN (occurrence: CN)
  Receive Date: 20171228
  Receipt Date: 20171228
  Transmission Date: 20180321
  Serious: Yes (Other)
  Sender: FDA-Public Use
  Company Number: CN-BAUSCH-BL-2017-035880

PATIENT
  Age: 30 Year
  Sex: Female

DRUGS (1)
  1. PREDNISOLONE. [Suspect]
     Active Substance: PREDNISOLONE
     Indication: HAEMOLYTIC ANAEMIA
     Route: 048

REACTIONS (4)
  - Central obesity [Unknown]
  - Conjunctival oedema [Unknown]
  - Swelling face [Unknown]
  - Cushingoid [Unknown]
